FAERS Safety Report 16246316 (Version 4)
Quarter: 2019Q3

REPORT INFORMATION
  Report Type: Report from Study
  Country: US (occurrence: US)
  Receive Date: 20190426
  Receipt Date: 20190731
  Transmission Date: 20191004
  Serious: Yes (Hospitalization, Other)
  Sender: FDA-Public Use
  Company Number: US-TAKEDA-2015US004618

PATIENT
  Sex: Male

DRUGS (1)
  1. PONATINIB [Suspect]
     Active Substance: PONATINIB
     Indication: ACUTE LYMPHOCYTIC LEUKAEMIA
     Dosage: 45 MILLIGRAM, QD
     Route: 048
     Dates: start: 20150212

REACTIONS (21)
  - Gastrointestinal perforation [Unknown]
  - Abdominal distension [Unknown]
  - Diarrhoea [Unknown]
  - Basal cell carcinoma [Unknown]
  - Eye disorder [Unknown]
  - Eye irritation [Unknown]
  - Flatulence [Unknown]
  - Vomiting [Unknown]
  - Gastrointestinal necrosis [Unknown]
  - Photophobia [Unknown]
  - Decreased appetite [Unknown]
  - Abdominal pain [Unknown]
  - Faeces discoloured [Unknown]
  - Vitreous floaters [Unknown]
  - Abdominal discomfort [Unknown]
  - Abdominal pain upper [Unknown]
  - Weight decreased [Unknown]
  - Constipation [Unknown]
  - Contusion [Unknown]
  - Chills [Unknown]
  - Stomatitis [Unknown]
